FAERS Safety Report 4343534-0 (Version None)
Quarter: 2004Q2

REPORT INFORMATION
  Report Type: 
  Country: None (occurrence: None)
  Receive Date: 20040419
  Receipt Date: 20040408
  Transmission Date: 20050107
  Serious: Yes (Hospitalization)
  Sender: FDA-Public Use
  Company Number: A0411071A

PATIENT
  Age: 49 Year
  Sex: Female
  Weight: 64.3654 kg

DRUGS (4)
  1. PAXIL [Suspect]
     Indication: DEPRESSION
     Dosage: 20 MG/PER DAY/ORAL
     Route: 048
     Dates: start: 19980303, end: 19980324
  2. DALMANE [Concomitant]
  3. PROPRANOLOL HYDROCHLORIDE [Concomitant]
  4. ZOLPIDEM TARTRATE [Concomitant]

REACTIONS (26)
  - ABASIA [None]
  - ABNORMAL BEHAVIOUR [None]
  - ACCIDENT [None]
  - AMNESIA [None]
  - ANXIETY [None]
  - ARTHRALGIA [None]
  - CONDITION AGGRAVATED [None]
  - CRYING [None]
  - DIPLOPIA [None]
  - DRUG WITHDRAWAL SYNDROME [None]
  - DYSARTHRIA [None]
  - FACIAL PALSY [None]
  - FEAR [None]
  - FEELING ABNORMAL [None]
  - GASTROOESOPHAGEAL REFLUX DISEASE [None]
  - HEMIPARESIS [None]
  - IMPAIRED DRIVING ABILITY [None]
  - INSOMNIA [None]
  - INTENTIONAL SELF-INJURY [None]
  - JOINT CONTRACTURE [None]
  - MUSCLE CRAMP [None]
  - MUSCLE SPASTICITY [None]
  - PELVIC FRACTURE [None]
  - SUICIDE ATTEMPT [None]
  - TOOTH DISORDER [None]
  - TRAUMATIC BRAIN INJURY [None]
